FAERS Safety Report 14068248 (Version 1)
Quarter: 2017Q4

REPORT INFORMATION
  Report Type: Spontaneous
  Country: US (occurrence: None)
  Receive Date: 20171010
  Receipt Date: 20171010
  Transmission Date: 20180321
  Serious: Yes (Other)
  Sender: FDA-Public Use
  Company Number: None

PATIENT
  Age: 58 Year
  Sex: Female
  Weight: 60.78 kg

DRUGS (4)
  1. ASPRIN [Concomitant]
     Active Substance: ASPIRIN
  2. COD LIVER OIL [Concomitant]
     Active Substance: COD LIVER OIL
  3. TRILAFON [Suspect]
     Active Substance: PERPHENAZINE
     Indication: SCHIZOPHRENIA
     Dosage: 30 PILLS 1 DAILY BY MOUTH
     Route: 048
     Dates: start: 20121017, end: 20170720
  4. GEODON [Suspect]
     Active Substance: ZIPRASIDONE HYDROCHLORIDE\ZIPRASIDONE MESYLATE

REACTIONS (16)
  - Constipation [None]
  - Balance disorder [None]
  - Fall [None]
  - Bruxism [None]
  - Diarrhoea [None]
  - Feeling hot [None]
  - Nerve injury [None]
  - Uterine leiomyoma [None]
  - Cough [None]
  - Restlessness [None]
  - Asthenia [None]
  - Myalgia [None]
  - Seizure [None]
  - Hyperhidrosis [None]
  - Vision blurred [None]
  - Dry mouth [None]

NARRATIVE: CASE EVENT DATE: 2014
